FAERS Safety Report 16116288 (Version 1)
Quarter: 2019Q1

REPORT INFORMATION
  Report Type: Report from Study
  Country: None (occurrence: SE)
  Receive Date: 20190326
  Receipt Date: 20190326
  Transmission Date: 20190418
  Serious: Yes (Hospitalization)
  Sender: FDA-Public Use
  Company Number: SE-ABBVIE-19S-150-2714279-00

PATIENT
  Age: 60 Year
  Sex: Female

DRUGS (2)
  1. DUODOPA [Suspect]
     Active Substance: CARBIDOPA\LEVODOPA
     Route: 050
     Dates: start: 20171102
  2. DUODOPA [Suspect]
     Active Substance: CARBIDOPA\LEVODOPA
     Indication: PARKINSON^S DISEASE
     Route: 050
     Dates: start: 20170320

REACTIONS (5)
  - Fall [Recovering/Resolving]
  - Spinal osteoarthritis [Recovering/Resolving]
  - Sensory loss [Recovering/Resolving]
  - Spinal column injury [Recovering/Resolving]
  - Wheelchair user [Recovering/Resolving]

NARRATIVE: CASE EVENT DATE: 20181223
